FAERS Safety Report 12547130 (Version 1)
Quarter: 2016Q3

REPORT INFORMATION
  Report Type: Report from Study
  Country: BR (occurrence: BR)
  Receive Date: 20160711
  Receipt Date: 20160711
  Transmission Date: 20161109
  Serious: Yes (Other)
  Sender: FDA-Public Use
  Company Number: ALCN2016BR004655

PATIENT
  Age: 80 Year
  Sex: Female
  Weight: 80 kg

DRUGS (1)
  1. VITALUX PLUS [Suspect]
     Active Substance: VITAMINS
     Indication: VITAMIN SUPPLEMENTATION
     Dosage: 1 TABLET, BID
     Route: 048
     Dates: start: 2015

REACTIONS (1)
  - Cataract [Unknown]
